FAERS Safety Report 14935284 (Version 4)
Quarter: 2018Q3

REPORT INFORMATION
  Report Type: Report from Study
  Country: MX (occurrence: MX)
  Receive Date: 20180524
  Receipt Date: 20180730
  Transmission Date: 20181010
  Serious: Yes (Other)
  Sender: FDA-Public Use
  Company Number: MX-BAYER-2018-095721

PATIENT
  Age: 64 Year
  Sex: Female
  Weight: 60 kg

DRUGS (8)
  1. HYPROMELLOSE [Concomitant]
     Active Substance: HYPROMELLOSES
  2. PREDNISOLONE. [Concomitant]
     Active Substance: PREDNISOLONE
  3. NEXAVAR [Suspect]
     Active Substance: SORAFENIB
     Indication: RENAL CELL CARCINOMA
     Dosage: 600 MG, QD
     Route: 048
     Dates: start: 20160701, end: 20180629
  4. TRAMADOL. [Concomitant]
     Active Substance: TRAMADOL
  5. LATANOPROST. [Concomitant]
     Active Substance: LATANOPROST
     Indication: EYE PAIN
  6. ACETAMINOPHEN. [Concomitant]
     Active Substance: ACETAMINOPHEN
  7. PREGABALIN. [Concomitant]
     Active Substance: PREGABALIN
  8. OMEPRAZOLE. [Concomitant]
     Active Substance: OMEPRAZOLE

REACTIONS (14)
  - Adrenal disorder [Not Recovered/Not Resolved]
  - Weight decreased [None]
  - Acne [Recovered/Resolved]
  - Drug dose omission [Recovered/Resolved]
  - Eye pain [Not Recovered/Not Resolved]
  - Pain in extremity [Not Recovered/Not Resolved]
  - Limb mass [Not Recovered/Not Resolved]
  - Oral discomfort [Recovered/Resolved]
  - Metastases to lymph nodes [Not Recovered/Not Resolved]
  - Lung disorder [Not Recovered/Not Resolved]
  - Fear [Not Recovered/Not Resolved]
  - Restlessness [Not Recovered/Not Resolved]
  - Decreased appetite [Not Recovered/Not Resolved]
  - Oral pain [Recovered/Resolved]

NARRATIVE: CASE EVENT DATE: 2017
